FAERS Safety Report 23526785 (Version 1)
Quarter: 2024Q1

REPORT INFORMATION
  Report Type: Spontaneous
  Country: CN (occurrence: CN)
  Receive Date: 20240215
  Receipt Date: 20240215
  Transmission Date: 20240410
  Serious: Yes (Hospitalization)
  Sender: FDA-Public Use
  Company Number: CN-009507513-2402CHN003864

PATIENT
  Age: 83 Year
  Sex: Male
  Weight: 65 kg

DRUGS (2)
  1. CILASTATIN SODIUM\IMIPENEM [Suspect]
     Active Substance: CILASTATIN SODIUM\IMIPENEM
     Indication: Anti-infective therapy
     Dosage: 1000 MG, TID
     Route: 041
     Dates: start: 20240123, end: 20240125
  2. MEROPENEM [Concomitant]
     Active Substance: MEROPENEM
     Indication: Anti-infective therapy
     Dosage: UNK
     Dates: start: 20240119, end: 20240123

REACTIONS (4)
  - Sleep disorder [Unknown]
  - Dysphoria [Unknown]
  - Mania [Unknown]
  - Adverse event [Unknown]

NARRATIVE: CASE EVENT DATE: 20240125
